FAERS Safety Report 4312825-1 (Version None)
Quarter: 2004Q1

REPORT INFORMATION
  Report Type: 
  Country: None (occurrence: None)
  Receive Date: 20040304
  Receipt Date: 20040212
  Transmission Date: 20041129
  Serious: Yes (Life-Threatening)
  Sender: FDA-Public Use
  Company Number: A01200400937

PATIENT
  Sex: Female

DRUGS (1)
  1. STILNOX - (ZOLPIDEM) - TABLET - 10 MG [Suspect]
     Indication: OVERDOSE
     Dosage: 200 MG ONCE

REACTIONS (2)
  - INTENTIONAL OVERDOSE [None]
  - RESPIRATORY ACIDOSIS [None]
